APPROVED DRUG PRODUCT: HOMAPIN-10
Active Ingredient: HOMATROPINE METHYLBROMIDE
Strength: 10MG
Dosage Form/Route: TABLET;ORAL
Application: A086308 | Product #001
Applicant: MISSION PHARMACAL CO
Approved: Approved Prior to Jan 1, 1982 | RLD: No | RS: No | Type: DISCN